FAERS Safety Report 12788352 (Version 1)
Quarter: 2016Q3

REPORT INFORMATION
  Report Type: Report from Study
  Country: FR (occurrence: FR)
  Receive Date: 20160928
  Receipt Date: 20160928
  Transmission Date: 20161109
  Serious: Yes (Hospitalization)
  Sender: FDA-Public Use
  Company Number: FR-ROCHE-1175421

PATIENT
  Age: 23 Year
  Sex: Male
  Weight: 89 kg

DRUGS (4)
  1. DEPAKINE [Concomitant]
     Active Substance: VALPROATE SODIUM
     Route: 065
     Dates: start: 2004
  2. VEMURAFENIB [Suspect]
     Active Substance: VEMURAFENIB
     Indication: NEOPLASM MALIGNANT
     Dosage: DATE OF LAST DOSE PRIOR TO SAE: 26/DEC/2012
     Route: 048
     Dates: start: 20121218, end: 20121227
  3. VEMURAFENIB [Suspect]
     Active Substance: VEMURAFENIB
     Route: 048
     Dates: start: 20130103
  4. URBANYL [Concomitant]
     Active Substance: CLOBAZAM
     Route: 065
     Dates: start: 201202

REACTIONS (1)
  - Hyperthermia [Recovered/Resolved]

NARRATIVE: CASE EVENT DATE: 20121226
